FAERS Safety Report 10971193 (Version 1)
Quarter: 2015Q1

REPORT INFORMATION
  Report Type: Report from Study
  Country: ZA (occurrence: ZA)
  Receive Date: 20150331
  Receipt Date: 20150331
  Transmission Date: 20150721
  Serious: Yes (Hospitalization)
  Sender: FDA-Public Use
  Company Number: PHHY2015ZA035085

PATIENT
  Age: 81 Year
  Sex: Female

DRUGS (13)
  1. ZARTAN [Concomitant]
     Indication: HYPERTENSION
     Dosage: 100 U, UNK
     Route: 048
  2. PURESIS [Concomitant]
     Active Substance: FUROSEMIDE
     Indication: DIURETIC THERAPY
     Dosage: 40 U, UNK
     Route: 048
  3. NAVALPRO [Concomitant]
     Indication: EPILEPSY
     Dosage: 500 AND 500 U
     Route: 048
  4. OMEPRAZOLE SANDOZ [Suspect]
     Active Substance: OMEPRAZOLE
     Indication: ULCER
     Dosage: 20 MG, UNK
     Route: 048
     Dates: start: 20141001
  5. ELTROXIN [Concomitant]
     Active Substance: LEVOTHYROXINE
     Indication: THYROID DISORDER
     Dosage: 100 U, UNK
     Route: 048
  6. PLENISH-K [Concomitant]
     Indication: MINERAL SUPPLEMENTATION
     Dosage: 600 U, UNK
     Route: 048
  7. BISLO [Concomitant]
     Indication: HYPERTENSION
     Dosage: 5 U, UNK
     Route: 048
  8. ULSANIC [Concomitant]
     Active Substance: SUCRALFATE
     Indication: ULCER
     Dosage: 1000 U, UNK
     Route: 048
  9. SPIRACTIN//PIMECLONE HYDROCHLORIDE [Concomitant]
     Indication: DIURETIC THERAPY
     Dosage: 25 U, UNK
     Route: 048
  10. ASPAVOR [Concomitant]
     Active Substance: ATORVASTATIN
     Indication: HYPERTENSION
     Dosage: 20 U, UNK
     Route: 048
  11. CELEBREX [Concomitant]
     Active Substance: CELECOXIB
     Indication: PAIN
     Dosage: 200 U, UNK
     Route: 048
  12. DISPRIN [Concomitant]
     Active Substance: ASPIRIN
     Indication: ANTICOAGULANT THERAPY
     Dosage: 300 U, UNK
     Route: 048
  13. TREPILINE [Concomitant]
     Active Substance: AMITRIPTYLINE
     Indication: ANTIDEPRESSANT THERAPY
     Dosage: 40 U, UNK
     Route: 048

REACTIONS (3)
  - Cardiac failure [Recovering/Resolving]
  - Cerebrovascular accident [Recovering/Resolving]
  - Asthenia [Recovering/Resolving]
